FAERS Safety Report 16974611 (Version 7)
Quarter: 2024Q1

REPORT INFORMATION
  Report Type: Spontaneous
  Country: US (occurrence: US)
  Receive Date: 20191030
  Receipt Date: 20240124
  Transmission Date: 20240409
  Serious: Yes (Other)
  Sender: FDA-Public Use
  Company Number: US-GILEAD-2019-0434773

PATIENT
  Age: 56 Year
  Sex: Male

DRUGS (38)
  1. VIREAD [Suspect]
     Active Substance: TENOFOVIR DISOPROXIL FUMARATE
     Indication: HIV infection
     Dosage: UNK
     Route: 048
     Dates: start: 2002, end: 2015
  2. TRUVADA [Suspect]
     Active Substance: EMTRICITABINE\TENOFOVIR DISOPROXIL FUMARATE
     Indication: HIV infection
     Route: 048
  3. BIKTARVY [Concomitant]
     Active Substance: BICTEGRAVIR SODIUM\EMTRICITABINE\TENOFOVIR ALAFENAMIDE FUMARATE
     Indication: HIV infection
  4. ACETAMINOPHEN [Concomitant]
     Active Substance: ACETAMINOPHEN
  5. ACYCLOVIR [Concomitant]
     Active Substance: ACYCLOVIR
  6. AMOXICILLIN [Concomitant]
     Active Substance: AMOXICILLIN
  7. ASPIRIN [Concomitant]
     Active Substance: ASPIRIN
  8. BACTRIM [Concomitant]
     Active Substance: SULFAMETHOXAZOLE\TRIMETHOPRIM
  9. TAGAMET [Concomitant]
     Active Substance: CIMETIDINE
  10. CORTISONE [Concomitant]
     Active Substance: CORTISONE
  11. CELEBREX [Concomitant]
     Active Substance: CELECOXIB
  12. PREDNISONE [Concomitant]
     Active Substance: PREDNISONE
  13. ZANTAC [Concomitant]
     Active Substance: RANITIDINE HYDROCHLORIDE
  14. TETRACYCLINE [Concomitant]
     Active Substance: TETRACYCLINE
  15. COMBIVIR [Concomitant]
     Active Substance: LAMIVUDINE\ZIDOVUDINE
  16. CRIXIVAN [Concomitant]
     Active Substance: INDINAVIR SULFATE
  17. EPIVIR [Concomitant]
     Active Substance: LAMIVUDINE
  18. INTELENCE [Concomitant]
     Active Substance: ETRAVIRINE
  19. INVIRASE [Concomitant]
     Active Substance: SAQUINAVIR MESYLATE
  20. KALETRA [Concomitant]
     Active Substance: LOPINAVIR\RITONAVIR
  21. NORVIR [Concomitant]
     Active Substance: RITONAVIR
  22. PREZCOBIX [Concomitant]
     Active Substance: COBICISTAT\DARUNAVIR ETHANOLATE
  23. SELZENTRY [Concomitant]
     Active Substance: MARAVIROC
  24. SUSTIVA [Concomitant]
     Active Substance: EFAVIRENZ
  25. TIVICAY [Concomitant]
     Active Substance: DOLUTEGRAVIR SODIUM
  26. VIDEX [Concomitant]
     Active Substance: DIDANOSINE
  27. VIRACEPT [Concomitant]
     Active Substance: NELFINAVIR MESYLATE
  28. ZERIT [Concomitant]
     Active Substance: STAVUDINE
  29. DEXLANSOPRAZOLE [Concomitant]
     Active Substance: DEXLANSOPRAZOLE
  30. ESOMEPRAZOLE [Concomitant]
     Active Substance: ESOMEPRAZOLE
  31. FAMOTIDINE [Concomitant]
     Active Substance: FAMOTIDINE
  32. LANSOPRAZOLE [Concomitant]
     Active Substance: LANSOPRAZOLE
  33. OMEPRAZOLE [Concomitant]
     Active Substance: OMEPRAZOLE
  34. RANITIDINE [Concomitant]
     Active Substance: RANITIDINE
  35. PREZISTA [Concomitant]
     Active Substance: DARUNAVIR ETHANOLATE
  36. ANDROGEL [Concomitant]
     Active Substance: TESTOSTERONE
  37. DIAZEPAM [Concomitant]
     Active Substance: DIAZEPAM
  38. DESCOVY [Concomitant]
     Active Substance: EMTRICITABINE\TENOFOVIR ALAFENAMIDE FUMARATE

REACTIONS (26)
  - Osteoporosis [Not Recovered/Not Resolved]
  - Spinal compression fracture [Not Recovered/Not Resolved]
  - Lumbar vertebral fracture [Not Recovered/Not Resolved]
  - Multiple fractures [Unknown]
  - Vertebroplasty [Not Recovered/Not Resolved]
  - Shoulder operation [Unknown]
  - Vertebral foraminal stenosis [Not Recovered/Not Resolved]
  - Intervertebral disc degeneration [Not Recovered/Not Resolved]
  - Intervertebral disc space narrowing [Not Recovered/Not Resolved]
  - Osteopenia [Not Recovered/Not Resolved]
  - Sacroiliitis [Not Recovered/Not Resolved]
  - Spinal osteoarthritis [Not Recovered/Not Resolved]
  - Facet joint syndrome [Not Recovered/Not Resolved]
  - Economic problem [Not Recovered/Not Resolved]
  - Anhedonia [Not Recovered/Not Resolved]
  - Emotional distress [Not Recovered/Not Resolved]
  - Anxiety [Not Recovered/Not Resolved]
  - Pain [Not Recovered/Not Resolved]
  - Bone density decreased [Unknown]
  - Partner stress [Unknown]
  - General physical health deterioration [Not Recovered/Not Resolved]
  - Gait disturbance [Not Recovered/Not Resolved]
  - Back pain [Not Recovered/Not Resolved]
  - Mobility decreased [Not Recovered/Not Resolved]
  - Depression [Not Recovered/Not Resolved]
  - Feeling abnormal [Not Recovered/Not Resolved]

NARRATIVE: CASE EVENT DATE: 20060101
